FAERS Safety Report 4363827-0 (Version None)
Quarter: 2004Q2

REPORT INFORMATION
  Report Type: 
  Country: None (occurrence: None)
  Receive Date: 20040521
  Receipt Date: 20040428
  Transmission Date: 20050107
  Serious: Yes (Death, Life-Threatening)
  Sender: FDA-Public Use
  Company Number: IGH/ 04/ 08/ UNK

PATIENT
  Age: 53 Year
  Sex: Male

DRUGS (5)
  1. IMMUNE GLOBULIN INTRAVENOUS (HUMAN) (IMMUNOGLOBULIN HUMAN NORMAL) [Suspect]
     Indication: DRUG USE FOR UNKNOWN INDICATION
  2. MABCAMPATH (CAMPATH-1H) [Suspect]
     Indication: BONE MARROW TRANSPLANT
     Dosage: 20 MG, CYCLICAL
  3. FLUDARABINE (FLUDARABINE) [Suspect]
     Indication: BONE MARROW TRANSPLANT
     Dosage: 30 MG/M2, CYCLICAL
  4. MELPHALAN (MELPHALAN) [Suspect]
     Indication: BONE MARROW TRANSPLANT
     Dosage: 140 MG/M2, CYCLICA, UNKNOWN
  5. CYCLOSPORINE [Suspect]
     Indication: INFECTION PROPHYLAXIS

REACTIONS (8)
  - ADENOVIRUS INFECTION [None]
  - CULTURE STOOL POSITIVE [None]
  - GASTROENTERITIS ADENOVIRUS [None]
  - GRAFT VERSUS HOST DISEASE [None]
  - HEPATIC INFECTION [None]
  - LUNG INFECTION [None]
  - MULTI-ORGAN FAILURE [None]
  - POST PROCEDURAL COMPLICATION [None]
